FAERS Safety Report 8623934-0 (Version None)
Quarter: 2012Q3

REPORT INFORMATION
  Report Type: 
  Country: None (occurrence: None)
  Receive Date: 20120827
  Receipt Date: 20120822
  Transmission Date: 20120928
  Serious: Yes (Other)
  Sender: FDA-Public Use
  Company Number: PHHY2012MX073676

PATIENT
  Sex: Female

DRUGS (3)
  1. CLONAZEPAM [Concomitant]
     Indication: EPILEPSY
     Dosage: 2 MG, BID
  2. TRILEPTAL [Suspect]
     Indication: EPILEPSY
     Dosage: 300 MG, BID
  3. ATEMPERATOR [Concomitant]
     Dosage: UNK UKN, UNK

REACTIONS (1)
  - LOWER LIMB FRACTURE [None]
